FAERS Safety Report 4760935-7 (Version None)
Quarter: 2005Q3

REPORT INFORMATION
  Report Type: 
  Country: None (occurrence: None)
  Receive Date: 20050901
  Receipt Date: 20050823
  Transmission Date: 20060218
  Serious: Yes (Hospitalization)
  Sender: FDA-Public Use
  Company Number: 2005US001099

PATIENT
  Age: 7 Year
  Sex: Female
  Weight: 22.6 kg

DRUGS (12)
  1. PROGRAF [Suspect]
     Indication: PROPHYLAXIS AGAINST TRANSPLANT REJECTION
     Dosage: 4.00 MG,
  2. ZENAPAX [Suspect]
     Indication: PROPHYLAXIS AGAINST TRANSPLANT REJECTION
     Dosage: 23.00 MG,
     Dates: start: 20050707
  3. CELLCEPT [Concomitant]
  4. BACTRIM [Concomitant]
  5. VALCYTE [Concomitant]
  6. ZANTAC [Concomitant]
  7. NIFEREX (POLYSACCHARIDE-IRON COMPLEX) [Concomitant]
  8. CLEOCIN [Concomitant]
  9. PERIDEX (CHLORHEXIDINE GLUCONATE) [Concomitant]
  10. CYSTAGON (MERCAPTAMINE BITARTRATE) [Concomitant]
  11. REGLAN / USA/ (METOCLOPRAMIDE HYDROCHLORIDE) [Concomitant]
  12. NEUPOGEN [Concomitant]

REACTIONS (5)
  - GINGIVITIS [None]
  - LYMPHADENOPATHY [None]
  - NEUTROPENIA [None]
  - PERIODONTITIS [None]
  - PYREXIA [None]
